FAERS Safety Report 19816845 (Version 1)
Quarter: 2021Q3

REPORT INFORMATION
  Report Type: Spontaneous
  Country: US (occurrence: US)
  Receive Date: 20210910
  Receipt Date: 20210910
  Transmission Date: 20211014
  Serious: Yes (Other)
  Sender: FDA-Public Use
  Company Number: US-ALLERGAN-2131465US

PATIENT
  Sex: Male

DRUGS (1)
  1. FLUOXETINE HCL UNK [Suspect]
     Active Substance: FLUOXETINE HYDROCHLORIDE
     Indication: DEPRESSION

REACTIONS (11)
  - Pleural effusion [Recovering/Resolving]
  - Ascites [Recovering/Resolving]
  - Thrombocytopenia [Recovering/Resolving]
  - Portal vein dilatation [Recovering/Resolving]
  - Colitis [Recovering/Resolving]
  - Hepatic steatosis [Recovering/Resolving]
  - Off label use [Unknown]
  - Mast cell activation syndrome [Recovering/Resolving]
  - Duodenitis [Recovering/Resolving]
  - Hepatosplenomegaly [Recovering/Resolving]
  - Anaemia [Recovering/Resolving]
